FAERS Safety Report 19058418 (Version 1)
Quarter: 2021Q1

REPORT INFORMATION
  Report Type: Spontaneous
  Country: JP (occurrence: JP)
  Receive Date: 20210324
  Receipt Date: 20210324
  Transmission Date: 20210420
  Serious: Yes (Other)
  Sender: FDA-Public Use
  Company Number: JP-AMGEN-JPNSP2020204428

PATIENT
  Sex: Female

DRUGS (3)
  1. ASPARA?CA [Concomitant]
     Active Substance: CALCIUM ASPARTATE
     Dosage: UNK
     Route: 065
  2. STEROIDS [Concomitant]
     Active Substance: UNSPECIFIED INGREDIENT
     Dosage: UNK
     Route: 048
  3. PRALIA [Suspect]
     Active Substance: DENOSUMAB
     Indication: OSTEOPOROSIS
     Dosage: 60 MILLIGRAM
     Route: 065

REACTIONS (12)
  - Eye discharge [Not Recovered/Not Resolved]
  - Eyelid ptosis [Not Recovered/Not Resolved]
  - Anaphylactic reaction [Unknown]
  - Eczema [Unknown]
  - Dysuria [Unknown]
  - Acne [Not Recovered/Not Resolved]
  - Arrhythmia [Unknown]
  - Renal impairment [Not Recovered/Not Resolved]
  - Oedema [Unknown]
  - Hypoaesthesia [Unknown]
  - Hepatic function abnormal [Not Recovered/Not Resolved]
  - Arthralgia [Unknown]

NARRATIVE: CASE EVENT DATE: 20201210
